FAERS Safety Report 9247798 (Version 1)
Quarter: 2013Q2

REPORT INFORMATION
  Report Type: Spontaneous
  Country: US (occurrence: US)
  Receive Date: 20130423
  Receipt Date: 20130423
  Transmission Date: 20140414
  Serious: Yes (Hospitalization)
  Sender: FDA-Public Use
  Company Number: US-BRISTOL-MYERS SQUIBB COMPANY-18784082

PATIENT
  Age: 63 Year
  Sex: Male
  Weight: 92.97 kg

DRUGS (12)
  1. BYDUREON [Suspect]
     Indication: TYPE 2 DIABETES MELLITUS
     Dosage: LAST DOSE ON 06APR2013
     Dates: start: 20120912, end: 20130406
  2. METFORMIN [Concomitant]
  3. SYNTHROID [Concomitant]
  4. NOVOLOG [Concomitant]
  5. MULTIVITAMIN [Concomitant]
  6. CIALIS [Concomitant]
  7. VITAMIN D [Concomitant]
  8. CARVEDILOL [Concomitant]
  9. HYDROCHLOROTHIAZIDE [Concomitant]
  10. FENOFIBRATE [Concomitant]
  11. ALPHA-LIPOIC ACID [Concomitant]
  12. HYDROCODONE [Concomitant]

REACTIONS (1)
  - Pancreatitis [Unknown]
